FAERS Safety Report 19834654 (Version 1)
Quarter: 2021Q3

REPORT INFORMATION
  Report Type: Other
  Country: US (occurrence: US)
  Receive Date: 20210915
  Receipt Date: 20210915
  Transmission Date: 20211014
  Serious: No
  Sender: FDA-Public Use
  Company Number: US-LEADIANT BIOSCIENCES INC-2020STPI000401

PATIENT
  Sex: Female

DRUGS (4)
  1. MATULANE [Suspect]
     Active Substance: PROCARBAZINE HYDROCHLORIDE
     Indication: BRAIN NEOPLASM MALIGNANT
     Dosage: 100 MG, DAILY
     Route: 048
     Dates: start: 20200527
  2. LISINOPRIL. [Concomitant]
     Active Substance: LISINOPRIL
  3. FEROSUL [Concomitant]
     Active Substance: FERROUS SULFATE
  4. HYDROCHLOROTH [Concomitant]
     Active Substance: HYDROCHLOROTHIAZIDE

REACTIONS (2)
  - Nausea [Not Recovered/Not Resolved]
  - White blood cell count increased [Not Recovered/Not Resolved]
